FAERS Safety Report 9046969 (Version 2)
Quarter: 2013Q1

REPORT INFORMATION
  Report Type: Spontaneous
  Country: US (occurrence: US)
  Receive Date: 20130204
  Receipt Date: 20130301
  Transmission Date: 20140127
  Serious: Yes (Hospitalization)
  Sender: FDA-Public Use
  Company Number: US-ELI_LILLY_AND_COMPANY-US201301010070

PATIENT
  Age: 13 Year
  Sex: Male

DRUGS (2)
  1. OLANZAPINE [Suspect]
     Indication: BIPOLAR DISORDER
     Dosage: 15 MG, QD
  2. LAMOTRIGINE [Concomitant]
     Indication: BIPOLAR DISORDER
     Dosage: 200 MG, QD

REACTIONS (3)
  - Electroencephalogram abnormal [Unknown]
  - Disturbance in attention [Unknown]
  - Mood swings [Unknown]
